FAERS Safety Report 15299438 (Version 1)
Quarter: 2018Q3

REPORT INFORMATION
  Report Type: Spontaneous
  Country: HK (occurrence: HK)
  Receive Date: 20180821
  Receipt Date: 20180821
  Transmission Date: 20181010
  Serious: No
  Sender: FDA-Public Use
  Company Number: HK-LUPIN PHARMACEUTICALS INC.-2018-05304

PATIENT
  Age: 40 Year
  Sex: Female

DRUGS (2)
  1. CELECOXIB. [Suspect]
     Active Substance: CELECOXIB
     Indication: SCIATICA
     Dosage: UNK
     Route: 065
  2. TYLENOL [Concomitant]
     Active Substance: ACETAMINOPHEN
     Indication: SCIATICA
     Dosage: UNK
     Route: 065

REACTIONS (1)
  - Oedema [Recovered/Resolved]
